FAERS Safety Report 4545758-6 (Version None)
Quarter: 2005Q1

REPORT INFORMATION
  Report Type: 
  Country: None (occurrence: None)
  Receive Date: 20050103
  Receipt Date: 20041214
  Transmission Date: 20050727
  Serious: Yes (Other)
  Sender: FDA-Public Use
  Company Number: US_0412109335

PATIENT
  Age: 65 Year
  Sex: Female

DRUGS (2)
  1. HUMULIN R [Suspect]
     Dosage: 10 U/1 IN THE EVENING
  2. HUMULIN N [Suspect]

REACTIONS (5)
  - BLOOD GLUCOSE INCREASED [None]
  - EYE HAEMORRHAGE [None]
  - MACULAR OEDEMA [None]
  - NEOVASCULARISATION [None]
  - PHARMACEUTICAL PRODUCT COMPLAINT [None]
